FAERS Safety Report 5098410-5 (Version None)
Quarter: 2006Q3

REPORT INFORMATION
  Report Type: 
  Country: None (occurrence: None)
  Receive Date: 20060906
  Receipt Date: 20060112
  Transmission Date: 20061208
  Serious: No
  Sender: FDA-Public Use
  Company Number: US-GLAXOSMITHKLINE-A0589052A

PATIENT
  Age: 71 Year
  Sex: Female

DRUGS (4)
  1. REQUIP [Suspect]
     Indication: PARKINSON'S DISEASE
     Dosage: 4MG FOUR TIMES PER DAY
     Route: 048
  2. MIDODRINE HYDROCHLORIDE [Concomitant]
  3. COLACE [Concomitant]
  4. GLUCOSAMINE [Concomitant]

REACTIONS (3)
  - DECREASED APPETITE [None]
  - SOMNOLENCE [None]
  - URINARY TRACT INFECTION [None]
